FAERS Safety Report 9188701 (Version 2)
Quarter: 2013Q2

REPORT INFORMATION
  Report Type: Spontaneous
  Country: US (occurrence: US)
  Receive Date: 20130325
  Receipt Date: 20130503
  Transmission Date: 20140414
  Serious: No
  Sender: FDA-Public Use
  Company Number: US-PFIZER INC-2013093317

PATIENT
  Age: 39 Year
  Sex: Female
  Weight: 80.27 kg

DRUGS (5)
  1. XELJANZ [Suspect]
     Indication: RHEUMATOID ARTHRITIS
     Dosage: 5 MG, 2X/DAY
     Route: 048
     Dates: start: 20121129, end: 20130204
  2. XELJANZ [Suspect]
     Dosage: 5 MG, 2X/DAY
     Route: 048
     Dates: start: 201212, end: 201301
  3. PREDNISONE [Concomitant]
     Indication: SWELLING
     Dosage: 10MG DAILY
  4. VICODIN [Concomitant]
     Indication: PAIN
     Dosage: UNK
  5. NORCO [Concomitant]
     Indication: PAIN
     Dosage: UNK

REACTIONS (4)
  - Menstruation irregular [Recovered/Resolved]
  - Amenorrhoea [Recovered/Resolved]
  - Abdominal distension [Recovered/Resolved]
  - Abdominal pain [Recovered/Resolved]
